FAERS Safety Report 8963672 (Version 1)
Quarter: 2012Q4

REPORT INFORMATION
  Report Type: 
  Country: HK (occurrence: HK)
  Receive Date: 20121214
  Receipt Date: 20121214
  Transmission Date: 20130627
  Serious: Yes (Hospitalization, Other)
  Sender: FDA-Public Use
  Company Number: HK-ROXANE LABORATORIES, INC.-2012-RO-02552RO

PATIENT
  Age: 49 Year
  Sex: Male

DRUGS (10)
  1. LITHIUM CARBONATE [Suspect]
     Indication: BIPOLAR DISORDER
     Dosage: 1000 mg
  2. FUROSEMIDE [Suspect]
     Indication: CARDIOMYOPATHY
  3. MORPHINE [Suspect]
     Indication: SEDATION
  4. MIDAZOLAM [Suspect]
     Indication: SEDATION
  5. TRIFLUOPERAZINE [Suspect]
     Indication: BIPOLAR DISORDER
  6. TRIHEXYPHENIDYL [Suspect]
     Indication: BIPOLAR DISORDER
  7. ASPIRIN [Suspect]
     Indication: CARDIOMYOPATHY
  8. PERINDOPRIL [Suspect]
     Indication: CARDIOMYOPATHY
  9. CARVEDILOL [Suspect]
     Indication: CARDIOMYOPATHY
  10. ALDACTONE [Suspect]
     Indication: CARDIOMYOPATHY

REACTIONS (4)
  - Toxicity to various agents [Recovered/Resolved]
  - Neuropathy peripheral [Recovered/Resolved]
  - Nephrogenic diabetes insipidus [Unknown]
  - Blood sodium increased [Recovered/Resolved]
